FAERS Safety Report 9783399 (Version 1)
Quarter: 2013Q4

REPORT INFORMATION
  Report Type: Spontaneous
  Country: JP (occurrence: JP)
  Receive Date: 20131226
  Receipt Date: 20131226
  Transmission Date: 20140711
  Serious: Yes (Other)
  Sender: FDA-Public Use
  Company Number: JP-BAYER-2013-156179

PATIENT
  Sex: Female

DRUGS (1)
  1. YAZ [Suspect]
     Dosage: UNK
     Route: 048
     Dates: start: 201311

REACTIONS (3)
  - Hyperthyroidism [None]
  - Blood cholesterol decreased [None]
  - Blood triglycerides decreased [None]
